FAERS Safety Report 6064878-0 (Version None)
Quarter: 2009Q1

REPORT INFORMATION
  Report Type: 
  Country: None (occurrence: None)
  Receive Date: 20090121
  Receipt Date: 20080111
  Transmission Date: 20090719
  Serious: Yes (Other)
  Sender: FDA-Public Use
  Company Number: HQWYE606610MAY05

PATIENT
  Age: 56 Year
  Sex: Female

DRUGS (5)
  1. PREMPRO [Suspect]
     Dosage: ORAL
     Route: 048
     Dates: start: 19970101, end: 19980101
  2. PREMARIN [Suspect]
     Dosage: ORAL ; ORAL
     Route: 048
     Dates: start: 19920101, end: 19970101
  3. PREMARIN [Suspect]
     Dosage: ORAL ; ORAL
     Route: 048
     Dates: start: 19980101, end: 20041001
  4. PROVERA [Suspect]
     Dosage: ORAL ; ORAL
     Route: 048
     Dates: start: 19920101, end: 19970101
  5. PROVERA [Suspect]
     Dosage: ORAL ; ORAL
     Route: 048
     Dates: start: 19980101, end: 20041001

REACTIONS (1)
  - BREAST CANCER [None]
